FAERS Safety Report 8477344-X (Version None)
Quarter: 2012Q2

REPORT INFORMATION
  Report Type: 
  Country: None (occurrence: None)
  Receive Date: 20120622
  Receipt Date: 20120613
  Transmission Date: 20120825
  Serious: Yes (Death, Hospitalization)
  Sender: FDA-Public Use
  Company Number: 2012HGS-003736

PATIENT
  Sex: Female
  Weight: 78.9259 kg

DRUGS (27)
  1. ACIPHEX (RABEPRAZOLE SODIUM) (RABEPRAZOLE SODIUM) [Concomitant]
  2. DHEA (PRASTERONE) (PRASTERONE) [Concomitant]
  3. DURAGESIC (NORGESIC /00070401/) (PARACETAMOL, ORPHENADRINE CITRATE) [Concomitant]
  4. VITAMIN D3 (COLECALCIFEROL) (COLECALCIFEROL) [Concomitant]
  5. BONIVA (IBANDRONATE SODIUM) (IBANDRONATE SODIUM) [Concomitant]
  6. SPIRONOLACTONE [Concomitant]
  7. CLONAZEPAM [Concomitant]
  8. LEXAPRO (ESCITALOPRAM OXALATE) (ESCITALOPRAM OXALATE) [Concomitant]
  9. ZYRTEC [Concomitant]
  10. NADOLOL (NADOLOL) (NADOLOL) [Concomitant]
  11. OXYCODONE HCL [Concomitant]
  12. LASIX [Concomitant]
  13. BENLYSTA [Suspect]
     Dosage: 10 MG/KG, 1 IN 28 D, INTRAVENOUS DRIP
     Route: 041
     Dates: start: 20110802, end: 20120516
  14. QUESTRAN (COLESTYRAMINE) (COLESTYRAMINE) [Concomitant]
  15. OXYCONTIN (OXYCODONE HYDROCHLORIDE) (OXYCODONE HYDROCHLORIDE) [Concomitant]
  16. AMITRIPTYLINE (AMITRIPTYLINE) (AMITRIPTYLINE) [Concomitant]
  17. GLIMEPIRIDE (GLIMEPIRIDE) (GLIMEPIRIDE) [Concomitant]
  18. NYSTATIN (NYSTATIN) (NYSTATIN) [Concomitant]
  19. HUMALOG [Concomitant]
  20. CALCIUM (CALCIUM) (CALCIUM) [Concomitant]
  21. REGLAN [Concomitant]
  22. XIFAXAN (RIFAXIMIN) (RIFAXIMIN) [Concomitant]
  23. LOMOTIL (LOMOTIL) (ATROPINE SULFATE, DIPHENOXYLATE HYDROCHLORIDE) [Concomitant]
  24. PREDNISONE [Concomitant]
  25. URSODIOL (URSODEOXYCHOLIC ACID) (URSODEOXYCHOLIC ACID) [Concomitant]
  26. LACTULOSE (LACTULOSE) (LACTULOSE) [Concomitant]
  27. COLCHICINE [Concomitant]

REACTIONS (5)
  - RENAL FAILURE [None]
  - OEDEMA PERIPHERAL [None]
  - HEPATORENAL SYNDROME [None]
  - HYPOTENSION [None]
  - ASCITES [None]
